FAERS Safety Report 16191125 (Version 3)
Quarter: 2019Q2

REPORT INFORMATION
  Report Type: Spontaneous
  Country: US (occurrence: US)
  Receive Date: 20190412
  Receipt Date: 20190513
  Transmission Date: 20190711
  Serious: Yes (Hospitalization, Other)
  Sender: FDA-Public Use
  Company Number: US-PFIZER INC-2019152743

PATIENT
  Age: 71 Year
  Sex: Female

DRUGS (2)
  1. PROPANOLOL HCL [Suspect]
     Active Substance: PROPRANOLOL HYDROCHLORIDE
     Dosage: UNK
  2. IRON [Concomitant]
     Active Substance: IRON
     Indication: ANAEMIA
     Dosage: UNK

REACTIONS (3)
  - Toxicity to various agents [Recovering/Resolving]
  - Hypoperfusion [Recovering/Resolving]
  - Delayed haemolytic transfusion reaction [Recovering/Resolving]
